FAERS Safety Report 4610247-7 (Version None)
Quarter: 2005Q2

REPORT INFORMATION
  Report Type: 
  Country: None (occurrence: None)
  Receive Date: 20050301
  Receipt Date: 20041102
  Transmission Date: 20051028
  Serious: No
  Sender: FDA-Public Use
  Company Number: WAES 0411USA00388

PATIENT
  Age: 83 Year
  Sex: Male
  Weight: 109.7705 kg

DRUGS (10)
  1. ZETIA [Suspect]
     Indication: BLOOD CHOLESTEROL INCREASED
     Dosage: 10 MG DAILY PO
     Route: 048
     Dates: start: 20040801
  2. ECOTRIN [Concomitant]
  3. ZOCOR [Concomitant]
  4. ASCORBIC ACID [Concomitant]
  5. ATENOLOL [Concomitant]
  6. CYANOCOBALAMIN [Concomitant]
  7. FOLIC ACID [Concomitant]
  8. GLYBURIDE [Concomitant]
  9. ISOSORBIDE [Concomitant]
  10. VITAMIN E [Concomitant]

REACTIONS (2)
  - BREAST PAIN [None]
  - HYPERTROPHY BREAST [None]
